FAERS Safety Report 5896113-8 (Version None)
Quarter: 2008Q3

REPORT INFORMATION
  Report Type: 
  Country: None (occurrence: None)
  Receive Date: 20080924
  Receipt Date: 20070410
  Transmission Date: 20090109
  Serious: Yes (Hospitalization, Other)
  Sender: FDA-Public Use
  Company Number: US-ASTRAZENECA-2007UW02077

PATIENT
  Age: 546 Month
  Sex: Female
  Weight: 68.9 kg

DRUGS (8)
  1. SEROQUEL [Suspect]
     Indication: SCHIZOPHRENIA
     Route: 048
     Dates: start: 20021127, end: 20030417
  2. SEROQUEL [Suspect]
     Indication: DEPRESSION
     Route: 048
     Dates: start: 20021127, end: 20030417
  3. SEROQUEL [Suspect]
     Route: 048
     Dates: start: 20030418, end: 20040701
  4. SEROQUEL [Suspect]
     Route: 048
     Dates: start: 20030418, end: 20040701
  5. SEROQUEL [Suspect]
     Dosage: 100 TO 400 MG
     Route: 048
     Dates: start: 20040701, end: 20060401
  6. SEROQUEL [Suspect]
     Dosage: 100 TO 400 MG
     Route: 048
     Dates: start: 20040701, end: 20060401
  7. GEODON [Concomitant]
     Dates: start: 20060321, end: 20060501
  8. HALDOL [Concomitant]
     Dates: start: 20020101

REACTIONS (9)
  - BRONCHITIS [None]
  - DIZZINESS [None]
  - DYSPNOEA [None]
  - OBESITY [None]
  - PAIN IN EXTREMITY [None]
  - PNEUMONIA [None]
  - SUICIDE ATTEMPT [None]
  - TYPE 2 DIABETES MELLITUS [None]
  - WEIGHT INCREASED [None]
